FAERS Safety Report 15065001 (Version 3)
Quarter: 2018Q3

REPORT INFORMATION
  Report Type: Spontaneous
  Country: JP (occurrence: JP)
  Receive Date: 20180626
  Receipt Date: 20180913
  Transmission Date: 20181010
  Serious: Yes (Death, Life-Threatening, Other)
  Sender: FDA-Public Use
  Company Number: JP-TAKEDA-2018TJP016740

PATIENT
  Age: 70 Year
  Sex: Male
  Weight: 45.9 kg

DRUGS (13)
  1. NINLARO [Suspect]
     Active Substance: IXAZOMIB CITRATE
     Indication: PLASMA CELL MYELOMA
     Dosage: 3 MG, QD
     Route: 048
     Dates: start: 20180416, end: 20180416
  2. FOLIAMIN [Concomitant]
     Active Substance: FOLIC ACID
     Indication: ANAEMIA
     Dosage: 5 MG, TID
     Route: 048
     Dates: start: 20180316, end: 20180502
  3. REVLIMID [Suspect]
     Active Substance: LENALIDOMIDE
     Indication: PLASMA CELL MYELOMA
     Dosage: 5 MG, QD
     Route: 048
     Dates: start: 20180416, end: 20180423
  4. NESP [Concomitant]
     Active Substance: DARBEPOETIN ALFA
     Indication: RENAL FAILURE
     Dosage: 120 UG, 1/WEEK
     Route: 050
     Dates: start: 20180315, end: 20180508
  5. LENADEX [Suspect]
     Active Substance: DEXAMETHASONE ACETATE
     Indication: PLASMA CELL MYELOMA
     Dosage: 20 MG, QD
     Route: 048
     Dates: start: 20180416, end: 20180423
  6. NASEA [Concomitant]
     Active Substance: RAMOSETRON HYDROCHLORIDE
     Indication: PROPHYLAXIS
     Dosage: 0.1 MG, QD
     Route: 048
     Dates: start: 20180416, end: 20180416
  7. LANSOPRAZOLE. [Concomitant]
     Active Substance: LANSOPRAZOLE
     Indication: GASTRIC ULCER
     Dosage: 15 MG, QD
     Route: 048
     Dates: start: 20180316, end: 20180502
  8. BIOFERMIN R [Concomitant]
     Active Substance: BACILLUS SUBTILIS\LACTOBACILLUS ACIDOPHILUS\STREPTOCOCCUS FAECAIS
     Indication: PROPHYLAXIS
     Dosage: 1 G, TID
     Route: 048
     Dates: start: 20180316, end: 20180502
  9. BAYASPIRIN [Concomitant]
     Active Substance: ASPIRIN
     Indication: PROPHYLAXIS
     Dosage: 100 MG, QD
     Route: 048
     Dates: start: 20180416, end: 20180423
  10. ZOVIRAX [Concomitant]
     Active Substance: ACYCLOVIR
     Indication: PROPHYLAXIS
     Dosage: 200 MG, QD
     Route: 048
     Dates: start: 20180307, end: 20180502
  11. ONBREZ [Concomitant]
     Active Substance: INDACATEROL
     Indication: CHRONIC OBSTRUCTIVE PULMONARY DISEASE
     Dosage: 150 UG, QD
     Route: 050
     Dates: start: 20180313, end: 20180502
  12. FLAGYL [Concomitant]
     Active Substance: METRONIDAZOLE\METRONIDAZOLE HYDROCHLORIDE
     Indication: DIARRHOEA
     Dosage: 500 MG, TID
     Route: 048
     Dates: start: 20180322, end: 20180501
  13. OXYCONTIN [Concomitant]
     Active Substance: OXYCODONE HYDROCHLORIDE
     Indication: BACK PAIN
     Dosage: 10 MG, BID
     Route: 048
     Dates: start: 20180307, end: 20180502

REACTIONS (7)
  - Discoloured vomit [Unknown]
  - Blood pressure decreased [Unknown]
  - Plasma cell myeloma [Fatal]
  - Faeces discoloured [Unknown]
  - General physical health deterioration [Unknown]
  - Pneumocystis jirovecii pneumonia [Fatal]
  - Platelet count decreased [Unknown]

NARRATIVE: CASE EVENT DATE: 20180423
